FAERS Safety Report 7280329-2 (Version None)
Quarter: 2010Q4

REPORT INFORMATION
  Report Type: 
  Country: None (occurrence: None)
  Receive Date: 20101221
  Receipt Date: 20100929
  Transmission Date: 20110411
  Serious: Yes (Other)
  Sender: FDA-Public Use
  Company Number: WAES 1009USA05558

PATIENT
  Age: 67 Year
  Sex: Female

DRUGS (1)
  1. NOROXIN [Suspect]
     Indication: PERITONITIS BACTERIAL
     Dosage: 400 MG/DAILY/PO
     Route: 048
     Dates: start: 20100915

REACTIONS (2)
  - BLOOD ALKALINE PHOSPHATASE INCREASED [None]
  - OFF LABEL USE [None]
